FAERS Safety Report 10156493 (Version 2)
Quarter: 2014Q2

REPORT INFORMATION
  Report Type: Spontaneous
  Country: FR (occurrence: FR)
  Receive Date: 20140507
  Receipt Date: 20140507
  Transmission Date: 20141212
  Serious: Yes (Hospitalization)
  Sender: FDA-Public Use
  Company Number: FR-ROCHE-1355721

PATIENT
  Age: 43 Year
  Sex: Male

DRUGS (28)
  1. BACTRIM [Suspect]
     Indication: HIV INFECTION
     Route: 048
     Dates: end: 20140205
  2. ROVALCYTE [Suspect]
     Indication: HIV INFECTION
     Dosage: DOSE REDUCED
     Route: 048
     Dates: start: 20140306, end: 20140409
  3. ROVALCYTE [Suspect]
     Route: 065
  4. FLUCONAZOLE [Suspect]
     Indication: HIV INFECTION
     Route: 048
     Dates: start: 20140116, end: 20140128
  5. CELSENTRI [Suspect]
     Indication: HIV INFECTION
     Route: 048
     Dates: start: 20140118
  6. DOLUTEGRAVIR [Suspect]
     Indication: HIV INFECTION
     Route: 048
     Dates: start: 20140118
  7. PRAVASTATINE [Concomitant]
  8. PREZISTA [Concomitant]
     Indication: HIV INFECTION
     Route: 065
     Dates: start: 20140118
  9. NORVIR [Concomitant]
     Indication: HIV INFECTION
     Route: 065
     Dates: start: 20140118
  10. VIREAD [Concomitant]
     Indication: HIV INFECTION
     Route: 065
     Dates: start: 20140118
  11. FOSCAVIR [Concomitant]
     Indication: HIV INFECTION
     Route: 065
     Dates: start: 20140121, end: 20140128
  12. METOCLOPRAMIDE [Concomitant]
     Route: 065
     Dates: start: 20140122, end: 20140126
  13. HYDROXYZINE [Concomitant]
     Route: 065
     Dates: start: 20140116
  14. TRAMADOL [Concomitant]
  15. EZETROL [Concomitant]
  16. ETOPOSIDE [Concomitant]
     Route: 065
     Dates: start: 20140129
  17. CYCLOPHOSPHAMIDE [Concomitant]
     Route: 065
     Dates: start: 20140129
  18. CYCLOPHOSPHAMIDE [Concomitant]
     Route: 065
     Dates: start: 20140206, end: 20140210
  19. ONDANSETRON [Concomitant]
     Route: 065
     Dates: start: 20140129
  20. PREDNISOLONE [Concomitant]
     Route: 065
     Dates: start: 20140130, end: 20140205
  21. PREDNISOLONE [Concomitant]
     Route: 065
     Dates: start: 20140206, end: 20140210
  22. DOXORUBICINE [Concomitant]
     Route: 042
     Dates: start: 20140206, end: 20140210
  23. VINCRISTINE [Concomitant]
     Route: 042
     Dates: start: 20140206, end: 20140210
  24. ENDOXAN [Concomitant]
     Route: 042
  25. MABTHERA [Concomitant]
     Route: 042
  26. WELLVONE [Concomitant]
     Route: 048
     Dates: start: 20140209, end: 20140408
  27. SOLUPRED (FRANCE) [Concomitant]
     Route: 065
  28. PENTACARINAT AEROSOL [Concomitant]

REACTIONS (3)
  - Agranulocytosis [Recovered/Resolved]
  - Anaemia [Recovered/Resolved]
  - Histiocytosis haematophagic [Recovered/Resolved]
